FAERS Safety Report 9127318 (Version 1)
Quarter: 2013Q1

REPORT INFORMATION
  Report Type: Spontaneous
  Country: US (occurrence: US)
  Receive Date: 20130228
  Receipt Date: 20130228
  Transmission Date: 20140127
  Serious: No
  Sender: FDA-Public Use
  Company Number: US-GLAXOSMITHKLINE-A0968819A

PATIENT
  Age: 32 Year
  Sex: Female
  Weight: 74.8 kg

DRUGS (2)
  1. LAMICTAL [Suspect]
     Indication: CONVULSION
     Dosage: 50MG PER DAY
     Route: 048
     Dates: start: 20120215, end: 20120305
  2. NO CONCURRENT MEDICATION [Concomitant]

REACTIONS (1)
  - Rash [Recovered/Resolved]
